FAERS Safety Report 6721179-2 (Version None)
Quarter: 2010Q2

REPORT INFORMATION
  Report Type: 
  Country: None (occurrence: None)
  Receive Date: 20100512
  Receipt Date: 20100512
  Transmission Date: 20101027
  Serious: Yes (Other)
  Sender: FDA-Public Use
  Company Number: None

PATIENT
  Age: 6 Month
  Sex: Male
  Weight: 9.0719 kg

DRUGS (4)
  1. TYLENOL CONCENTRATED TYLENOL CONCENTRATED MCNEIL [Suspect]
     Indication: TEETHING
     Dosage: 0.8 ML Q DAY PO
     Route: 048
     Dates: start: 20100129, end: 20100211
  2. TYLENOL CONCENTRATED TYLENOL CONCENTRATED MCNEIL [Suspect]
     Indication: VACCINATION COMPLICATION
     Dosage: 0.8 ML Q DAY PO
     Route: 048
     Dates: start: 20100129, end: 20100211
  3. CHILDREN'S ZYRTEC ALLERGY [Suspect]
     Indication: RHINORRHOEA
     Dosage: 2.5 ML Q HS PO
     Route: 048
     Dates: start: 20100129, end: 20100211
  4. CHILDREN'S ZYRTEC ALLERGY [Suspect]
     Indication: SNEEZING
     Dosage: 2.5 ML Q HS PO
     Route: 048
     Dates: start: 20100129, end: 20100211

REACTIONS (3)
  - CLOSTRIDIAL INFECTION [None]
  - DIARRHOEA [None]
  - VOMITING [None]
